FAERS Safety Report 9419634 (Version 1)
Quarter: 2013Q3

REPORT INFORMATION
  Report Type: Spontaneous
  Country: US (occurrence: None)
  Receive Date: 20130724
  Receipt Date: 20130724
  Transmission Date: 20140515
  Serious: Yes (Other)
  Sender: FDA-Public Use
  Company Number: None

PATIENT
  Age: 75 Year
  Sex: Male
  Weight: 86.18 kg

DRUGS (2)
  1. LEVOFLOXACIN [Suspect]
     Indication: INFLUENZA
     Dates: start: 20130210, end: 20130213
  2. LEVOFLOXACIN [Suspect]
     Indication: COUGH
     Dates: start: 20130210, end: 20130213

REACTIONS (2)
  - Pain in extremity [None]
  - Tendon rupture [None]
